FAERS Safety Report 8611897-3 (Version None)
Quarter: 2012Q3

REPORT INFORMATION
  Report Type: 
  Country: None (occurrence: None)
  Receive Date: 20120822
  Receipt Date: 20120821
  Transmission Date: 20120928
  Serious: Yes (Hospitalization)
  Sender: FDA-Public Use
  Company Number: DE-ROCHE-556030

PATIENT
  Sex: Female
  Weight: 47 kg

DRUGS (2)
  1. LEVOTHYROXINE SODIUM [Concomitant]
     Route: 048
  2. PEGASYS [Suspect]
     Indication: MALIGNANT MELANOMA
     Route: 058
     Dates: start: 20060323, end: 20070503

REACTIONS (1)
  - PERICARDITIS [None]
